FAERS Safety Report 4783042-6 (Version None)
Quarter: 2005Q3

REPORT INFORMATION
  Report Type: 
  Country: None (occurrence: None)
  Receive Date: 20050927
  Receipt Date: 20050913
  Transmission Date: 20060218
  Serious: Yes (Other)
  Sender: FDA-Public Use
  Company Number: 2005127193

PATIENT
  Sex: Male

DRUGS (2)
  1. UNISOM [Suspect]
     Dosage: 10 TABS AT ONCE, ORAL
     Route: 048
     Dates: start: 20050912, end: 20050912
  2. ESCITALOPRAM (ESCITALOPRAM0 [Concomitant]

REACTIONS (2)
  - INTENTIONAL MISUSE [None]
  - OVERDOSE [None]
